FAERS Safety Report 25648825 (Version 1)
Quarter: 2025Q3

REPORT INFORMATION
  Report Type: Spontaneous
  Country: US (occurrence: US)
  Receive Date: 20250806
  Receipt Date: 20250806
  Transmission Date: 20251021
  Serious: Yes (Other)
  Sender: AUROBINDO
  Company Number: US-MLMSERVICE-20250723-PI585681-00082-2

PATIENT
  Age: 36 Year
  Sex: Male

DRUGS (7)
  1. CARBOPLATIN [Suspect]
     Active Substance: CARBOPLATIN
     Indication: Malignant neoplasm progression
     Dosage: UNK UNK, EVERY WEEK  (WEEKLY CARBOPLATIN AUC 2)
     Route: 065
     Dates: start: 202206
  2. CAPECITABINE [Suspect]
     Active Substance: CAPECITABINE
     Indication: Squamous cell carcinoma of skin
     Route: 065
  3. CAPECITABINE [Suspect]
     Active Substance: CAPECITABINE
     Indication: Sarcomatoid carcinoma
  4. CAPECITABINE [Suspect]
     Active Substance: CAPECITABINE
     Indication: Metastases to nervous system
  5. CAPECITABINE [Suspect]
     Active Substance: CAPECITABINE
     Indication: Metastases to lymph nodes
  6. PACLITAXEL [Suspect]
     Active Substance: PACLITAXEL
     Indication: Malignant neoplasm progression
     Dosage: 60 MILLIGRAM/SQ. METER, EVERY WEEK
     Route: 065
     Dates: start: 202206
  7. CEMIPLIMAB [Suspect]
     Active Substance: CEMIPLIMAB
     Indication: Malignant neoplasm progression
     Route: 042
     Dates: start: 202206

REACTIONS (6)
  - Febrile neutropenia [Unknown]
  - Neutropenia [Unknown]
  - Renal failure [Unknown]
  - Fatigue [Unknown]
  - Decreased appetite [Unknown]
  - Nausea [Unknown]

NARRATIVE: CASE EVENT DATE: 20220101
